FAERS Safety Report 11679531 (Version 2)
Quarter: 2015Q4

REPORT INFORMATION
  Report Type: Spontaneous
  Country: US (occurrence: US)
  Receive Date: 20151027
  Receipt Date: 20151104
  Transmission Date: 20160304
  Serious: No
  Sender: FDA-Public Use
  Company Number: US-ELI_LILLY_AND_COMPANY-US201011006955

PATIENT
  Age: 62 Year
  Sex: Female

DRUGS (5)
  1. FORTEO [Suspect]
     Active Substance: TERIPARATIDE
     Dosage: 20 UG, QD
  2. FORTEO [Suspect]
     Active Substance: TERIPARATIDE
     Indication: OSTEOPOROSIS
     Dosage: 20 UG, DAILY (1/D)
     Dates: start: 20101001
  3. FORTEO [Suspect]
     Active Substance: TERIPARATIDE
     Dosage: 20 UG, QD
  4. VITAMIN D3 [Concomitant]
     Active Substance: CHOLECALCIFEROL
     Dosage: UNK, WEEKLY (1/W)
  5. CALCIUM [Concomitant]
     Active Substance: CALCIUM
     Dosage: 1200 MG, DAILY (1/D)

REACTIONS (8)
  - Bone pain [Recovered/Resolved]
  - Insomnia [Unknown]
  - Pain [Recovered/Resolved]
  - Restlessness [Unknown]
  - Anxiety [Unknown]
  - Pain in extremity [Unknown]
  - Injection site haemorrhage [Recovered/Resolved]
  - Feeling hot [Recovered/Resolved]

NARRATIVE: CASE EVENT DATE: 20101118
